FAERS Safety Report 6223978-2 (Version None)
Quarter: 2009Q2

REPORT INFORMATION
  Report Type: 
  Country: None (occurrence: None)
  Receive Date: 20090612
  Receipt Date: 20090302
  Transmission Date: 20091009
  Serious: No
  Sender: FDA-Public Use
  Company Number: US-ABBOTT-09P-163-0560542-00

PATIENT
  Sex: Female
  Weight: 61.29 kg

DRUGS (4)
  1. HUMIRA [Suspect]
     Indication: COLITIS ULCERATIVE
     Route: 058
     Dates: start: 20090101, end: 20090101
  2. HUMIRA [Suspect]
     Route: 058
     Dates: start: 20090101, end: 20090101
  3. HUMIRA [Suspect]
     Route: 058
  4. PREDNISONE [Concomitant]
     Indication: COLITIS ULCERATIVE

REACTIONS (3)
  - INCORRECT DOSE ADMINISTERED [None]
  - INJECTION SITE EXTRAVASATION [None]
  - WRONG TECHNIQUE IN DRUG USAGE PROCESS [None]
